FAERS Safety Report 8011326-7 (Version None)
Quarter: 2011Q4

REPORT INFORMATION
  Report Type: 
  Country: None (occurrence: None)
  Receive Date: 20111228
  Receipt Date: 20111221
  Transmission Date: 20120403
  Serious: Yes (Hospitalization, Other)
  Sender: FDA-Public Use
  Company Number: DE-PFIZER INC-2011260447

PATIENT
  Age: 44 Year
  Sex: Male

DRUGS (5)
  1. FLUPIRTINE MALEATE [Concomitant]
     Indication: COMPLEX REGIONAL PAIN SYNDROME
     Dosage: 400 MG, PER DAY
     Route: 048
     Dates: start: 20110917
  2. AMITRIPTYLINE HCL [Concomitant]
     Indication: COMPLEX REGIONAL PAIN SYNDROME
     Route: 048
  3. NALOXONE [Concomitant]
     Indication: COMPLEX REGIONAL PAIN SYNDROME
     Dosage: 20/10 MG PER DAY
     Route: 048
     Dates: start: 20110917
  4. LYRICA [Suspect]
     Dosage: 450 MG PER DAY
     Route: 048
     Dates: start: 20110101, end: 20111001
  5. LYRICA [Suspect]
     Indication: COMPLEX REGIONAL PAIN SYNDROME
     Dosage: UNK
     Route: 048
     Dates: start: 20110917, end: 20110101

REACTIONS (5)
  - PARAESTHESIA [None]
  - VISUAL ACUITY REDUCED [None]
  - SENSORY DISTURBANCE [None]
  - HYPOAESTHESIA [None]
  - GAMMA-GLUTAMYLTRANSFERASE INCREASED [None]
